FAERS Safety Report 13564254 (Version 2)
Quarter: 2017Q2

REPORT INFORMATION
  Report Type: Report from Study
  Country: DE (occurrence: DE)
  Receive Date: 20170519
  Receipt Date: 20170524
  Transmission Date: 20170830
  Serious: Yes (Death, Hospitalization)
  Sender: FDA-Public Use
  Company Number: PHHO2017DE007393

PATIENT
  Age: 68 Year
  Sex: Female
  Weight: 55 kg

DRUGS (8)
  1. VOLTAREN [Concomitant]
     Active Substance: DICLOFENAC SODIUM
     Indication: SPINAL PAIN
     Dosage: 150 MG, QD
     Route: 065
     Dates: start: 20170322
  2. SEVREDOL [Concomitant]
     Active Substance: MORPHINE
     Indication: SPINAL PAIN
     Dosage: 10 MG, PRN
     Route: 065
     Dates: start: 20170322
  3. CGS 20267 [Suspect]
     Active Substance: LETROZOLE
     Indication: BREAST CANCER
     Dosage: 2.5 MG, QD
     Route: 048
     Dates: start: 20170330
  4. LEE011 [Suspect]
     Active Substance: RIBOCICLIB
     Indication: BREAST CANCER
     Dosage: 600 MG, 3 WEEKS DAILY, 1 WEEK BREAK
     Route: 048
     Dates: start: 20170330
  5. AMITRIPTYLINE [Concomitant]
     Active Substance: AMITRIPTYLINE
     Indication: SPINAL PAIN
     Dosage: 25 MG, QD
     Route: 065
     Dates: start: 20170322
  6. OXYCODON [Concomitant]
     Active Substance: OXYCODONE
     Indication: SPINAL PAIN
     Dosage: 30 MG, QD
     Route: 065
     Dates: start: 20170328
  7. PANTOZOL [Concomitant]
     Active Substance: PANTOPRAZOLE SODIUM
     Indication: PROPHYLAXIS
     Dosage: 40 MG, QD
     Route: 065
     Dates: start: 20170322
  8. ONDANSETRON [Concomitant]
     Active Substance: ONDANSETRON
     Indication: VOMITING
     Dosage: 4 MG, PRN
     Route: 065
     Dates: start: 20170328

REACTIONS (6)
  - Acute kidney injury [Fatal]
  - Supraventricular tachycardia [Recovered/Resolved]
  - Thrombocytopenia [Recovering/Resolving]
  - Dyspnoea [Not Recovered/Not Resolved]
  - Pleural effusion [Not Recovered/Not Resolved]
  - Supraventricular tachycardia [Recovered/Resolved]

NARRATIVE: CASE EVENT DATE: 20170426
